FAERS Safety Report 6507671-4 (Version None)
Quarter: 2009Q4

REPORT INFORMATION
  Report Type: 
  Country: None (occurrence: None)
  Receive Date: 20091216
  Receipt Date: 20091207
  Transmission Date: 20100525
  Serious: Yes (Other)
  Sender: FDA-Public Use
  Company Number: AMAG200900070

PATIENT
  Age: 39 Year
  Sex: Female
  Weight: 67.6 kg

DRUGS (6)
  1. FERAHEME [Suspect]
     Indication: IRON DEFICIENCY ANAEMIA
     Dosage: 9 ML (270 MG), SINGLE, INTRAVENOUS
     Route: 042
     Dates: start: 20091125, end: 20091125
  2. ZITHROMAX [Concomitant]
  3. PROPYLTHIOURACIL [Concomitant]
  4. DIAZEPAM [Concomitant]
  5. NORVASC [Concomitant]
  6. HYDROCHLOROTHIAZIDE [Concomitant]

REACTIONS (11)
  - CHEST PAIN [None]
  - CONFUSIONAL STATE [None]
  - DISORIENTATION [None]
  - ELECTROCARDIOGRAM QT PROLONGED [None]
  - MUSCLE CONTRACTIONS INVOLUNTARY [None]
  - MUSCULOSKELETAL PAIN [None]
  - TONGUE BITING [None]
  - TREMOR [None]
  - UNRESPONSIVE TO STIMULI [None]
  - URINARY INCONTINENCE [None]
  - VOMITING [None]
